FAERS Safety Report 7049327-8 (Version None)
Quarter: 2010Q4

REPORT INFORMATION
  Report Type: 
  Country: None (occurrence: None)
  Receive Date: 20101018
  Receipt Date: 20100324
  Transmission Date: 20110411
  Serious: No
  Sender: FDA-Public Use
  Company Number: A0851806A

PATIENT
  Age: 59 Year
  Sex: Female

DRUGS (16)
  1. CEFTIN [Suspect]
     Route: 048
     Dates: start: 20100315, end: 20100320
  2. ADVAIR DISKUS 100/50 [Suspect]
     Indication: BRONCHITIS
     Dosage: 2PUFF TWICE PER DAY
     Route: 055
     Dates: start: 20100320
  3. CIPRO [Suspect]
     Indication: PRODUCT USED FOR UNKNOWN INDICATION
     Route: 065
  4. SYNTHROID [Concomitant]
  5. CELEBREX [Concomitant]
  6. NORCO [Concomitant]
  7. DURAGESIC-100 [Concomitant]
  8. FLAXSEED OIL [Concomitant]
  9. MULTI-VITAMIN [Concomitant]
  10. FOSAMAX [Concomitant]
  11. DEMADEX [Concomitant]
  12. VITAMIN E [Concomitant]
  13. ZOCOR [Concomitant]
  14. FLEXERIL [Concomitant]
  15. DEXAMETHASONE [Concomitant]
  16. MEDROL [Concomitant]

REACTIONS (9)
  - CANDIDIASIS [None]
  - COUGH [None]
  - DRUG INEFFECTIVE [None]
  - EMOTIONAL DISORDER [None]
  - ENERGY INCREASED [None]
  - FEELING ABNORMAL [None]
  - PSYCHOMOTOR HYPERACTIVITY [None]
  - SLEEP DISORDER [None]
  - WHEEZING [None]
